FAERS Safety Report 20205392 (Version 1)
Quarter: 2021Q4

REPORT INFORMATION
  Report Type: Other
  Country: US (occurrence: None)
  Receive Date: 20211220
  Receipt Date: 20211220
  Transmission Date: 20220303
  Serious: Yes (Death)
  Sender: FDA-Public Use
  Company Number: US-ROCHE-2981480

PATIENT
  Age: 50 Year
  Sex: Male

DRUGS (9)
  1. RITUXIMAB [Suspect]
     Active Substance: RITUXIMAB
     Indication: Pyrexia
     Route: 065
  2. METHOTREXATE [Concomitant]
     Active Substance: METHOTREXATE
     Route: 048
  3. PREDNISONE [Concomitant]
     Active Substance: PREDNISONE
     Dosage: LOWER THAN 20-30 MG/DAY
  4. INFLIXIMAB [Concomitant]
     Active Substance: INFLIXIMAB
  5. ANAKINRA [Concomitant]
     Active Substance: ANAKINRA
  6. METHYLPREDNISOLONE [Concomitant]
     Active Substance: METHYLPREDNISOLONE
  7. DEXAMETHASONE [Concomitant]
     Active Substance: DEXAMETHASONE
  8. RUXOLITINIB [Concomitant]
     Active Substance: RUXOLITINIB
  9. AMPICILLIN [Concomitant]
     Active Substance: AMPICILLIN

REACTIONS (2)
  - Pseudomonal bacteraemia [Fatal]
  - Sepsis [Fatal]
